FAERS Safety Report 10502680 (Version 2)
Quarter: 2014Q4

REPORT INFORMATION
  Report Type: Spontaneous
  Country: US (occurrence: US)
  Receive Date: 20141007
  Receipt Date: 20141017
  Transmission Date: 20150528
  Serious: Yes (Hospitalization)
  Sender: FDA-Public Use
  Company Number: US-LUNDBECK-DKLU1104084

PATIENT
  Age: 10 Year
  Sex: Female
  Weight: 23 kg

DRUGS (3)
  1. ONFI [Suspect]
     Active Substance: CLOBAZAM
     Indication: EPILEPSY
     Route: 048
     Dates: start: 20140903, end: 20140926
  2. TOPAMAX [Concomitant]
     Active Substance: TOPIRAMATE
     Indication: PRODUCT USED FOR UNKNOWN INDICATION
  3. VIMPAT [Concomitant]
     Active Substance: LACOSAMIDE
     Indication: PRODUCT USED FOR UNKNOWN INDICATION

REACTIONS (5)
  - Nasal discharge discolouration [Unknown]
  - Decreased appetite [Unknown]
  - Drooling [Not Recovered/Not Resolved]
  - Dysphagia [Unknown]
  - Weight decreased [Unknown]

NARRATIVE: CASE EVENT DATE: 201409
